FAERS Safety Report 7183147-9 (Version None)
Quarter: 2010Q4

REPORT INFORMATION
  Report Type: 
  Country: None (occurrence: None)
  Receive Date: 20101222
  Receipt Date: 20100113
  Transmission Date: 20110411
  Serious: No
  Sender: FDA-Public Use
  Company Number: US-PFIZER INC-2010005011

PATIENT
  Sex: Female

DRUGS (5)
  1. HALCION [Suspect]
  2. CLONAZEPAM [Suspect]
  3. SIMVASTATIN [Suspect]
  4. WELLBUTRIN [Suspect]
  5. VICODIN [Suspect]

REACTIONS (3)
  - DEPRESSION [None]
  - SINUSITIS [None]
  - TACHYPHRENIA [None]
